FAERS Safety Report 9238247 (Version 2)
Quarter: 2013Q3

REPORT INFORMATION
  Report Type: Spontaneous
  Country: US (occurrence: None)
  Receive Date: 20130415
  Receipt Date: 20130926
  Transmission Date: 20140515
  Serious: Yes (Hospitalization)
  Sender: FDA-Public Use
  Company Number: 2013PL000061

PATIENT
  Age: 34 Year
  Sex: Female

DRUGS (13)
  1. LOTRONEX [Suspect]
     Indication: IRRITABLE BOWEL SYNDROME
     Route: 048
     Dates: start: 20120809, end: 20120823
  2. DEPO-ESTRADIOL [Concomitant]
  3. OTHER THERAPEUTIC PRODUCTS [Concomitant]
  4. CLOBETASOL [Concomitant]
  5. NEXIUM [Concomitant]
  6. CHOLESTYRAMINE [Concomitant]
  7. WELCHOL [Concomitant]
  8. FLEXERIL [Concomitant]
  9. LITHIUM [Concomitant]
  10. PAXIL [Concomitant]
  11. PROMETHAZINE [Concomitant]
  12. RISPERDONE 4MG 1 HS [Concomitant]
  13. SINGULAIR [Concomitant]

REACTIONS (3)
  - Constipation [None]
  - Colitis ischaemic [None]
  - Diverticulum intestinal [None]
